FAERS Safety Report 5913313-9 (Version None)
Quarter: 2008Q3

REPORT INFORMATION
  Report Type: 
  Country: None (occurrence: None)
  Receive Date: 20080909
  Receipt Date: 20070815
  Transmission Date: 20090109
  Serious: Yes (Hospitalization)
  Sender: FDA-Public Use
  Company Number: 163-20785-07081085

PATIENT
  Age: 82 Year
  Sex: Male

DRUGS (2)
  1. THALOMID [Suspect]
     Indication: MULTIPLE MYELOMA
     Dosage: 200 MG, QD, ORAL ; 200 MG, QD, ORAL
     Route: 047
     Dates: start: 20041207, end: 20070314
  2. THALOMID [Suspect]
     Indication: MULTIPLE MYELOMA
     Dosage: 200 MG, QD, ORAL ; 200 MG, QD, ORAL
     Route: 047
     Dates: start: 20070330

REACTIONS (4)
  - ASTHENIA [None]
  - BRONCHITIS [None]
  - MALAISE [None]
  - VIRAL INFECTION [None]
